FAERS Safety Report 17857097 (Version 1)
Quarter: 2020Q2

REPORT INFORMATION
  Report Type: Spontaneous
  Country: ES (occurrence: ES)
  Receive Date: 20200603
  Receipt Date: 20200603
  Transmission Date: 20200714
  Serious: Yes (Other)
  Sender: FDA-Public Use
  Company Number: NVSC2020ES154716

PATIENT
  Age: 7 Year
  Sex: Male

DRUGS (4)
  1. AMOXICILLIN TRIHYDRATE,POTASSIUM CLAVULANATE [Suspect]
     Active Substance: AMOXICILLIN\CLAVULANATE POTASSIUM
     Indication: VOLVULUS
     Dosage: 1 DF, Q8H (750MG/8H)
     Route: 042
     Dates: start: 20190908, end: 20190920
  2. GENTAMICIN. [Suspect]
     Active Substance: GENTAMICIN
     Indication: VOLVULUS
     Dosage: 120 MG, QD
     Route: 042
     Dates: start: 20190908, end: 20190920
  3. METRONIDAZOLE. [Suspect]
     Active Substance: METRONIDAZOLE
     Indication: VOLVULUS
     Dosage: 230 MG, Q8H
     Route: 042
     Dates: start: 20190908, end: 20190920
  4. FUROSEMIDE. [Suspect]
     Active Substance: FUROSEMIDE
     Indication: PRODUCT USED FOR UNKNOWN INDICATION
     Dosage: 3 MG, Q8H
     Route: 042
     Dates: start: 20190916, end: 20190921

REACTIONS (1)
  - Pancreatitis [Recovered/Resolved]

NARRATIVE: CASE EVENT DATE: 20190918
